FAERS Safety Report 4355193-1 (Version None)
Quarter: 2004Q2

REPORT INFORMATION
  Report Type: 
  Country: None (occurrence: None)
  Receive Date: 20040504
  Receipt Date: 20040421
  Transmission Date: 20050107
  Serious: Yes (Death, Hospitalization)
  Sender: FDA-Public Use
  Company Number: RENA-10977

PATIENT
  Age: 77 Year
  Sex: Male

DRUGS (12)
  1. PHOSBLOCK - 250 MG TABLET [Suspect]
     Indication: HYPERPHOSPHATAEMIA
     Dosage: 0.5 G DAILY PO
     Route: 048
     Dates: start: 20030923, end: 20031020
  2. PHOSBLOCK - 250 MG TABLET [Suspect]
     Indication: HYPERPHOSPHATAEMIA
     Dosage: 1 G DAILY PO
     Route: 048
     Dates: start: 20031021, end: 20031229
  3. PHOSBLOCK - 250 MG TABLET [Suspect]
     Indication: HYPERPHOSPHATAEMIA
     Dosage: 2.25 G DAILY PO
     Route: 048
     Dates: start: 20031230, end: 20040103
  4. PHOSBLOCK - 250 MG TABLET [Suspect]
     Indication: HYPERPHOSPHATAEMIA
     Dosage: 3 G DAILY PO
     Route: 048
     Dates: start: 20040104, end: 20040114
  5. SENNOSIDE [Concomitant]
  6. MEQUITAZINE [Concomitant]
  7. ALLOPURINOL TAB [Concomitant]
  8. AMLODIPINE BESYLATE [Concomitant]
  9. CANDESARTAN CILEXETIL [Concomitant]
  10. VALSARTAN [Concomitant]
  11. DOXAZOSIN MESYLATE [Concomitant]
  12. CALCIUM POLYSTYRENE SULFONATE [Concomitant]

REACTIONS (14)
  - ALANINE AMINOTRANSFERASE INCREASED [None]
  - ASPARTATE AMINOTRANSFERASE INCREASED [None]
  - HAEMATOCHEZIA [None]
  - HAEMODIALYSIS [None]
  - HEPATIC FUNCTION ABNORMAL [None]
  - LARGE INTESTINAL HAEMORRHAGE [None]
  - LARGE INTESTINE PERFORATION [None]
  - OXYGEN SATURATION DECREASED [None]
  - PERITONITIS [None]
  - PNEUMONIA STAPHYLOCOCCAL [None]
  - PNEUMOTHORAX [None]
  - RESPIRATORY FAILURE [None]
  - THROMBOSIS [None]
  - VOMITING [None]
